FAERS Safety Report 19503014 (Version 2)
Quarter: 2021Q3

REPORT INFORMATION
  Report Type: Spontaneous
  Country: FR (occurrence: FR)
  Receive Date: 20210707
  Receipt Date: 20210719
  Transmission Date: 20211014
  Serious: Yes (Hospitalization)
  Sender: FDA-Public Use
  Company Number: FR-BAXTER-2021BAX018362

PATIENT
  Age: 50 Year
  Sex: Male
  Weight: 60.9 kg

DRUGS (13)
  1. ASPEGIC (ACETYLSALICYLATE LYSINE) [Suspect]
     Active Substance: ASPIRIN DL-LYSINE
     Indication: PRODUCT USED FOR UNKNOWN INDICATION
     Dosage: 300 MG AS IVD AROUND 2 P.M.
     Route: 042
     Dates: start: 20210415, end: 20210415
  2. SODIUM HEPARIN PANPHARMA [Suspect]
     Active Substance: HEPARIN SODIUM
     Indication: THROMBOSIS PROPHYLAXIS
     Dosage: 3500 IU AS IVD AROUND 2 P.M.
     Route: 042
     Dates: start: 20210415, end: 20210415
  3. ULTIVA [Suspect]
     Active Substance: REMIFENTANIL HYDROCHLORIDE
     Indication: ANAESTHESIA
     Route: 041
     Dates: start: 20210415, end: 20210415
  4. RINGER LACTATE VIAFLO, SOLUTION POUR PERFUSION [Suspect]
     Active Substance: CALCIUM CHLORIDE\POTASSIUM CHLORIDE\SODIUM CHLORIDE\SODIUM LACTATE
     Indication: HYPOVOLAEMIA
     Dosage: 500 ML IN INFUSION AROUND 10:35 A.M.
     Route: 041
     Dates: start: 20210415, end: 20210415
  5. AMOXICILLIN/CLAVULANIC ACID [Suspect]
     Active Substance: AMOXICILLIN\CLAVULANIC ACID
     Indication: ANTIBIOTIC PROPHYLAXIS
     Dosage: 4 INFUSIONS BETWEEN 10:30 A.M. AND 4 P.M.
     Route: 041
     Dates: start: 20210415, end: 20210415
  6. KETAMINE RENAUDIN [Suspect]
     Active Substance: KETAMINE
     Indication: ANAESTHESIA
     Dosage: 20 MG AS IVD AROUND 9:30 A.M.
     Route: 042
     Dates: start: 20210415, end: 20210415
  7. PLASMA?LYTE 148 [Suspect]
     Active Substance: MAGNESIUM CHLORIDE\POTASSIUM CHLORIDE\SODIUM ACETATE\SODIUM CHLORIDE\SODIUM GLUCONATE
     Indication: HYPOVOLAEMIA
     Dosage: 3000 ML BETWEEN 9 A.M. AND 3:30 P.M.
     Route: 041
     Dates: start: 20210415, end: 20210415
  8. METHYLPREDNISOLONE. [Suspect]
     Active Substance: METHYLPREDNISOLONE
     Indication: PRODUCT USED FOR UNKNOWN INDICATION
     Dosage: 120 MG AS IVD AROUND 10:30 A.M.
     Route: 042
     Dates: start: 20210415, end: 20210415
  9. RINGER LACTATE AGUETTANT [Suspect]
     Active Substance: CALCIUM CHLORIDE\POTASSIUM CHLORIDE\SODIUM CHLORIDE\SODIUM LACTATE
     Indication: HYPOVOLAEMIA
     Dosage: 500 ML IN INFUSION AROUND 10:35 A.M.
     Route: 041
     Dates: start: 20210415, end: 20210415
  10. VIALEBEX [Suspect]
     Active Substance: ALBUMIN HUMAN
     Indication: HYPOVOLAEMIA
     Dosage: VIALEBEX 20 PERCENT: 4 BOTTLES INCLUDING 3 FROM LOT 20L12143 AND 1 FROM LOT 20L12027
     Route: 041
     Dates: start: 20210415, end: 20210415
  11. NAROPEINE [Suspect]
     Active Substance: ROPIVACAINE HYDROCHLORIDE
     Indication: ANAESTHESIA
     Dosage: 150 MG AS INFILTRATION AROUND 11:15 A.M.
     Route: 065
     Dates: start: 20210415, end: 20210415
  12. PROPOFOL LIPURO [Suspect]
     Active Substance: PROPOFOL
     Indication: ANAESTHESIA
     Route: 041
     Dates: start: 20210415, end: 20210415
  13. CLOTTAFACT [Suspect]
     Active Substance: FIBRINOGEN HUMAN
     Indication: PROCEDURAL HAEMORRHAGE
     Dosage: 3 G AT 5:03 P.M. 1 BOTTLE FROM BATCH 20L02715 AND 1 BOTTLE FROM THE SAME BATCH OR FROM BATCH 20L1134
     Route: 042
     Dates: start: 20210415, end: 20210415

REACTIONS (1)
  - Anaphylactic shock [Recovered/Resolved]

NARRATIVE: CASE EVENT DATE: 20210415
